FAERS Safety Report 8997719 (Version 1)
Quarter: 2013Q1

REPORT INFORMATION
  Report Type: Report from Study
  Country: AU (occurrence: AU)
  Receive Date: 20130104
  Receipt Date: 20130104
  Transmission Date: 20140127
  Serious: Yes (Death)
  Sender: FDA-Public Use
  Company Number: AU-ROCHE-1176480

PATIENT
  Age: 84 Year
  Sex: Male

DRUGS (13)
  1. METHOXY POLYETHYLENE GLYCOL-EPOETIN BETA [Suspect]
     Indication: NEPHROGENIC ANAEMIA
     Dosage: LAST DOSE JUNE 2012
     Route: 058
     Dates: start: 20111021
  2. RISEDRONATE [Concomitant]
     Route: 065
  3. FENTANYL PATCH [Concomitant]
     Route: 065
  4. BUMETANIDE [Concomitant]
     Route: 065
  5. ASPIRIN [Concomitant]
     Route: 065
  6. SYMBICORT [Concomitant]
     Route: 065
  7. OMEPRAZOLE [Concomitant]
     Route: 065
  8. POLY-TEARS [Concomitant]
     Route: 065
  9. MAGNESIUM ASPARTATE [Concomitant]
     Route: 065
  10. PREDNISOLONE [Concomitant]
     Indication: RHEUMATOID ARTHRITIS
     Route: 065
  11. CALCIUM CARBONATE [Concomitant]
  12. DERMEZE [Concomitant]
     Route: 065
  13. OXYCODONE [Concomitant]
     Route: 065

REACTIONS (1)
  - Bronchopneumonia [Fatal]
